FAERS Safety Report 15331261 (Version 1)
Quarter: 2018Q3

REPORT INFORMATION
  Report Type: Spontaneous
  Country: US (occurrence: US)
  Receive Date: 20180824
  Receipt Date: 20180824
  Transmission Date: 20181010
  Serious: Yes (Hospitalization)
  Sender: FDA-Public Use
  Company Number: None

PATIENT
  Sex: Male

DRUGS (7)
  1. PREDNISONE. [Concomitant]
     Active Substance: PREDNISONE
  2. HUMIRA [Suspect]
     Active Substance: ADALIMUMAB
     Indication: CROHN^S DISEASE
     Dosage: ?          OTHER FREQUENCY:EVERY OTHER WEEK;?
     Route: 058
     Dates: start: 20130529
  3. AMBIEN, DOXYCYCL, ZOVIRAX, ZOHYDRO,XANAX [Concomitant]
  4. BIAXIN, AMANTADINE, OSCAL [Concomitant]
  5. ZYRTEC, MAGNESIUM VIT E,B,D, B12 [Concomitant]
  6. HYOSCYAMINE, HYDROCO/APAP, CRESTOR [Concomitant]
  7. MUPIROCIN, LYRICA, LIDOCAINE, LEVOXYL [Concomitant]

REACTIONS (1)
  - Crohn^s disease [None]
